FAERS Safety Report 6891600-8 (Version None)
Quarter: 2010Q3

REPORT INFORMATION
  Report Type: 
  Country: None (occurrence: None)
  Receive Date: 20100731
  Receipt Date: 20040415
  Transmission Date: 20110219
  Serious: No
  Sender: FDA-Public Use
  Company Number: US-PFIZER INC-2007064181

PATIENT
  Sex: Male

DRUGS (1)
  1. DEPO-MEDROL [Suspect]
     Dates: start: 20040101

REACTIONS (3)
  - BURNING SENSATION [None]
  - CHEST PAIN [None]
  - HYPOAESTHESIA [None]
